FAERS Safety Report 19964499 (Version 1)
Quarter: 2021Q4

REPORT INFORMATION
  Report Type: 
  Country: None (occurrence: None)
  Receive Date: 20211018
  Receipt Date: 20211018
  Transmission Date: 20220303
  Serious: No
  Sender: FDA-Public Use
  Company Number: None

PATIENT
  Age: 29 Year
  Sex: Male

DRUGS (1)
  1. ATROPINE SULFATE [Suspect]
     Active Substance: ATROPINE SULFATE

REACTIONS (1)
  - Vision blurred [Recovered/Resolved]
